FAERS Safety Report 5195249-7 (Version None)
Quarter: 2006Q4

REPORT INFORMATION
  Report Type: 
  Country: None (occurrence: None)
  Receive Date: 20061130
  Receipt Date: 20060627
  Transmission Date: 20070319
  Serious: Yes (Hospitalization, Disabling, Other)
  Sender: FDA-Public Use
  Company Number: WAES 0606USA05119

PATIENT
  Age: 76 Year
  Sex: Female
  Weight: 68.0396 kg

DRUGS (8)
  1. FOSAMAX [Suspect]
     Indication: OSTEOPOROSIS
     Dosage: 70 MG/WKY/PO
     Route: 048
     Dates: end: 20050501
  2. COREG [Concomitant]
  3. CRESTOR [Concomitant]
  4. LASIX [Concomitant]
  5. PLETAL [Concomitant]
  6. RELAFEN [Concomitant]
  7. ZANTAC [Concomitant]
  8. ASPIRIN [Concomitant]

REACTIONS (1)
  - OSTEONECROSIS [None]
